FAERS Safety Report 15675976 (Version 6)
Quarter: 2019Q4

REPORT INFORMATION
  Report Type: Spontaneous
  Country: US (occurrence: US)
  Receive Date: 20181130
  Receipt Date: 20191001
  Transmission Date: 20200122
  Serious: No
  Sender: FDA-Public Use
  Company Number: US-PFIZER INC-2018481332

PATIENT
  Age: 58 Year
  Sex: Female

DRUGS (1)
  1. FLECTOR [Suspect]
     Active Substance: DICLOFENAC EPOLAMINE
     Dosage: 3 DF, 1X/DAY (12 HOURS TRANSDERAML APPLIED THREE PATCHES)
     Route: 062

REACTIONS (1)
  - Prescribed overdose [Unknown]
